FAERS Safety Report 4650937-3 (Version None)
Quarter: 2005Q2

REPORT INFORMATION
  Report Type: 
  Country: None (occurrence: None)
  Receive Date: 20050503
  Receipt Date: 20050420
  Transmission Date: 20051028
  Serious: Yes (Hospitalization, Other)
  Sender: FDA-Public Use
  Company Number: A0555172B

PATIENT
  Age: 82 Year
  Sex: Female
  Weight: 38.6 kg

DRUGS (7)
  1. SENSODYNE-F [Suspect]
     Indication: DENTAL CLEANING
     Dates: start: 19610101
  2. SENSODYNE-F [Suspect]
     Indication: DENTAL CLEANING
     Dates: start: 20050418
  3. OS-CAL 500+D TABLETS [Concomitant]
     Route: 048
     Dates: start: 19750101
  4. SYNTHROID [Concomitant]
     Indication: HYPOTHYROIDISM
  5. EVISTA [Concomitant]
  6. MULTI-VITAMIN [Concomitant]
  7. MULTIVITAMIN [Concomitant]

REACTIONS (8)
  - HYPOAESTHESIA ORAL [None]
  - LIP AND/OR ORAL CAVITY CANCER [None]
  - MACULAR DEGENERATION [None]
  - ORAL DISCOMFORT [None]
  - PNEUMONIA [None]
  - POST PROCEDURAL COMPLICATION [None]
  - VISUAL ACUITY REDUCED [None]
  - WEIGHT DECREASED [None]
